FAERS Safety Report 12160111 (Version 2)
Quarter: 2016Q1

REPORT INFORMATION
  Report Type: Spontaneous
  Country: CH (occurrence: CH)
  Receive Date: 20160308
  Receipt Date: 20160314
  Transmission Date: 20160526
  Serious: Yes (Hospitalization)
  Sender: FDA-Public Use
  Company Number: CH-PFIZER INC-2016132757

PATIENT
  Age: 43 Year
  Sex: Male

DRUGS (6)
  1. TARGIN [Suspect]
     Active Substance: NALOXONE HYDROCHLORIDE\OXYCODONE HYDROCHLORIDE
     Indication: PAIN
     Dosage: 2X/DAY (170 MG/85 MG)
     Route: 048
  2. LYRICA [Suspect]
     Active Substance: PREGABALIN
     Dosage: 150 MG, 3X/DAY
     Route: 048
  3. OLFEN [Suspect]
     Active Substance: DICLOFENAC SODIUM
     Dosage: 50 MG, 3X/DAY
     Route: 048
  4. PANTOZOL [Suspect]
     Active Substance: PANTOPRAZOLE SODIUM
     Dosage: 20 MG, 3X/DAY
     Route: 048
  5. TRITTICO [Suspect]
     Active Substance: TRAZODONE HYDROCHLORIDE
     Dosage: 50 MG, 4X/DAY
     Route: 048
  6. OXYNORM [Suspect]
     Active Substance: OXYCODONE HYDROCHLORIDE
     Dosage: 20 ML, DAILY
     Route: 048

REACTIONS (7)
  - Chest pain [Unknown]
  - Oral mucosal erythema [Unknown]
  - Tachycardia [Unknown]
  - Restlessness [Unknown]
  - Dyspnoea [Unknown]
  - Urticaria [Unknown]
  - Pharyngeal oedema [Unknown]

NARRATIVE: CASE EVENT DATE: 20160214
